FAERS Safety Report 23560586 (Version 1)
Quarter: 2024Q1

REPORT INFORMATION
  Report Type: Report from Study
  Country: PH (occurrence: PH)
  Receive Date: 20240223
  Receipt Date: 20240223
  Transmission Date: 20240409
  Serious: Yes (Death)
  Sender: FDA-Public Use
  Company Number: PH-OTSUKA-2024_004634

PATIENT
  Sex: Male

DRUGS (2)
  1. TOLVAPTAN [Suspect]
     Active Substance: TOLVAPTAN
     Indication: Blood sodium decreased
     Dosage: 1/2 TABLET EVERY WEDNESDAY
     Route: 048
  2. TOLVAPTAN [Suspect]
     Active Substance: TOLVAPTAN
     Indication: Blood potassium decreased

REACTIONS (3)
  - Renal disorder [Fatal]
  - Product use in unapproved indication [Unknown]
  - Wrong technique in product usage process [Unknown]
